FAERS Safety Report 7072618-1 (Version None)
Quarter: 2010Q4

REPORT INFORMATION
  Report Type: 
  Country: None (occurrence: None)
  Receive Date: 20101029
  Receipt Date: 20100219
  Transmission Date: 20110411
  Serious: No
  Sender: FDA-Public Use
  Company Number: A0845447A

PATIENT
  Age: 91 Year
  Sex: Female

DRUGS (6)
  1. ADVAIR DISKUS 100/50 [Suspect]
     Indication: WHEEZING
     Dosage: 1PUFF TWICE PER DAY
     Route: 055
     Dates: start: 20091201
  2. DYAZIDE [Concomitant]
  3. PROPRANOLOL [Concomitant]
  4. RESTASIS [Concomitant]
  5. PATANOL [Concomitant]
  6. XALATAN [Concomitant]

REACTIONS (1)
  - DIZZINESS [None]
